FAERS Safety Report 25281796 (Version 1)
Quarter: 2025Q2

REPORT INFORMATION
  Report Type: Report from Study
  Country: US (occurrence: US)
  Receive Date: 20250508
  Receipt Date: 20250508
  Transmission Date: 20250716
  Serious: Yes (Other)
  Sender: TAKEDA
  Company Number: US-SHIRE-US201733574

PATIENT
  Age: 60 Year
  Sex: Female

DRUGS (2)
  1. HUMAN IMMUNOGLOBULIN G [Suspect]
     Active Substance: HUMAN IMMUNOGLOBULIN G
     Indication: Primary immunodeficiency syndrome
     Dosage: 26 GRAM, Q2WEEKS
  2. HUMAN IMMUNOGLOBULIN G [Suspect]
     Active Substance: HUMAN IMMUNOGLOBULIN G
     Indication: Immunodeficiency common variable

REACTIONS (13)
  - Pneumonia [Unknown]
  - COVID-19 [Unknown]
  - Foot fracture [Unknown]
  - Infusion site haemorrhage [Unknown]
  - Swelling [Unknown]
  - Sleep apnoea syndrome [Unknown]
  - Illness [Unknown]
  - Intervertebral disc protrusion [Unknown]
  - Candida infection [Unknown]
  - Influenza [Unknown]
  - Palpitations [Unknown]
  - Oxygen saturation decreased [Unknown]
  - Asthma [Unknown]

NARRATIVE: CASE EVENT DATE: 20171201
